FAERS Safety Report 14200242 (Version 2)
Quarter: 2018Q1

REPORT INFORMATION
  Report Type: Report from Study
  Country: JP (occurrence: JP)
  Receive Date: 20171117
  Receipt Date: 20180201
  Transmission Date: 20180508
  Serious: Yes (Hospitalization)
  Sender: FDA-Public Use
  Company Number: JP-EISAI MEDICAL RESEARCH-EC-2017-033168

PATIENT
  Age: 16 Year
  Sex: Female
  Weight: 58 kg

DRUGS (10)
  1. PHENYTOIN. [Concomitant]
     Active Substance: PHENYTOIN
  2. CLONAZEPAM. [Suspect]
     Active Substance: CLONAZEPAM
     Indication: PARTIAL SEIZURES
     Route: 048
     Dates: end: 20161120
  3. FYCOMPA [Suspect]
     Active Substance: PERAMPANEL
     Route: 048
     Dates: start: 20161128, end: 20161211
  4. LAMOTRIGINE. [Concomitant]
     Active Substance: LAMOTRIGINE
  5. ACETAMINOPHEN. [Concomitant]
     Active Substance: ACETAMINOPHEN
  6. DIAZEPAM. [Concomitant]
     Active Substance: DIAZEPAM
  7. SODIUM VALPROATE [Concomitant]
     Active Substance: VALPROATE SODIUM
  8. FYCOMPA [Suspect]
     Active Substance: PERAMPANEL
     Indication: PARTIAL SEIZURES
     Route: 048
     Dates: start: 20161114, end: 20161127
  9. FYCOMPA [Suspect]
     Active Substance: PERAMPANEL
     Route: 048
     Dates: start: 20161212, end: 20161218
  10. CLONAZEPAM. [Suspect]
     Active Substance: CLONAZEPAM
     Route: 048
     Dates: start: 20161121, end: 20161127

REACTIONS (1)
  - Seizure cluster [Recovering/Resolving]

NARRATIVE: CASE EVENT DATE: 20161204
